FAERS Safety Report 16805074 (Version 1)
Quarter: 2019Q3

REPORT INFORMATION
  Report Type: Spontaneous
  Country: IT (occurrence: IT)
  Receive Date: 20190913
  Receipt Date: 20190913
  Transmission Date: 20191005
  Serious: Yes (Hospitalization)
  Sender: FDA-Public Use
  Company Number: IT-ASTRAZENECA-2019SF26988

PATIENT
  Age: 45 Year
  Sex: Male
  Weight: 68 kg

DRUGS (1)
  1. DURVALUMAB. [Suspect]
     Active Substance: DURVALUMAB
     Indication: LUNG NEOPLASM MALIGNANT
     Dosage: 10.0MG/KG EVERY CYCLE
     Route: 042
     Dates: start: 20190806, end: 20190806

REACTIONS (3)
  - Cerebral haemorrhage [Unknown]
  - Haemorrhage [Unknown]
  - Aneurysm [Unknown]

NARRATIVE: CASE EVENT DATE: 20190812
